FAERS Safety Report 5672068-6 (Version None)
Quarter: 2008Q1

REPORT INFORMATION
  Report Type: 
  Country: None (occurrence: None)
  Receive Date: 20080319
  Receipt Date: 20080319
  Transmission Date: 20080703
  Serious: Yes (Life-Threatening)
  Sender: FDA-Public Use
  Company Number: None

PATIENT
  Age: 81 Year
  Sex: Female
  Weight: 93.8946 kg

DRUGS (1)
  1. HEPARIN [Suspect]
     Indication: CATHETERISATION CARDIAC
     Dosage: 3000 UNITS X1 IV
     Route: 042
     Dates: start: 20080317, end: 20080317

REACTIONS (10)
  - BLOOD PRESSURE DECREASED [None]
  - CHEST PAIN [None]
  - DYSPNOEA [None]
  - ERYTHEMA [None]
  - LACRIMATION INCREASED [None]
  - OXYGEN SATURATION DECREASED [None]
  - RASH GENERALISED [None]
  - SWELLING [None]
  - URTICARIA [None]
  - WHEEZING [None]
